FAERS Safety Report 5602639-4 (Version None)
Quarter: 2008Q1

REPORT INFORMATION
  Report Type: 
  Country: None (occurrence: None)
  Receive Date: 20080125
  Receipt Date: 20080115
  Transmission Date: 20080703
  Serious: Yes (Hospitalization, Other)
  Sender: FDA-Public Use
  Company Number: US-ASTRAZENECA-2006UW11067

PATIENT
  Age: 16587 Day
  Sex: Female
  Weight: 54.5 kg

DRUGS (20)
  1. SEROQUEL [Suspect]
     Indication: BIPOLAR DISORDER
     Dosage: 100-200MG
     Route: 048
     Dates: start: 20020101, end: 20020801
  2. SEROQUEL [Suspect]
     Dosage: 100-300MG
     Route: 048
     Dates: start: 20020814, end: 20070501
  3. ABILIFY [Concomitant]
  4. HALDOL [Concomitant]
  5. RISPERDAL [Concomitant]
     Route: 048
     Dates: start: 19990201, end: 20031226
  6. TRILAFON [Concomitant]
  7. ZYPREXA [Concomitant]
     Route: 048
     Dates: start: 20040113, end: 20040115
  8. PAXIL [Concomitant]
     Route: 048
     Dates: start: 20030601
  9. LEXAPRO [Concomitant]
     Route: 048
     Dates: start: 20030501
  10. LORAZEPAM [Concomitant]
     Route: 048
     Dates: start: 20030501
  11. ZOLOFT [Concomitant]
     Route: 048
     Dates: start: 20050401
  12. TEMAZEPAM [Concomitant]
     Route: 048
     Dates: start: 20041001
  13. DALMANE [Concomitant]
     Dates: start: 20020801
  14. ASACOL [Concomitant]
     Route: 048
     Dates: start: 20040301
  15. ALPRAZOLAM [Concomitant]
     Route: 048
     Dates: start: 19990401
  16. TRAZODONE HCL [Concomitant]
     Route: 048
     Dates: start: 20040301
  17. FLUFENAMINE [Concomitant]
     Dates: start: 20050601
  18. CLOMIPRAMINE HCL [Concomitant]
     Route: 048
     Dates: start: 19990201
  19. LOXAPINE [Concomitant]
     Dates: start: 20060101
  20. GEODON [Concomitant]
     Dates: start: 20060915

REACTIONS (5)
  - BLOOD CHOLESTEROL INCREASED [None]
  - GASTROENTERITIS [None]
  - HYPERLIPIDAEMIA [None]
  - INFLAMMATORY BOWEL DISEASE [None]
  - PANCREATITIS [None]
